FAERS Safety Report 25958941 (Version 1)
Quarter: 2025Q4

REPORT INFORMATION
  Report Type: Spontaneous
  Country: EU (occurrence: EU)
  Receive Date: 20251025
  Receipt Date: 20251025
  Transmission Date: 20260118
  Serious: Yes (Disabling)
  Sender: CELLTRION
  Company Number: None

PATIENT

DRUGS (8)
  1. YUFLYMA [Suspect]
     Active Substance: ADALIMUMAB-AATY
     Indication: Axial spondyloarthritis
     Dosage: UNK
     Route: 058
     Dates: start: 20241001, end: 20250730
  2. YUFLYMA [Suspect]
     Active Substance: ADALIMUMAB-AATY
  3. OXYCODONE [Suspect]
     Active Substance: OXYCODONE
     Indication: Axial spondyloarthritis
     Dosage: 10 MG
     Route: 048
     Dates: start: 2022
  4. OXYCODONE HYDROCHLORIDE [Suspect]
     Active Substance: OXYCODONE HYDROCHLORIDE
     Indication: Axial spondyloarthritis
     Dosage: 10MG/4H
     Route: 048
     Dates: start: 2022
  5. LORAZEPAM [Suspect]
     Active Substance: LORAZEPAM
     Indication: Anxiety
     Dosage: 2.5 MG/J
     Route: 048
     Dates: start: 2022
  6. HYDROCORTISONE [Suspect]
     Active Substance: HYDROCORTISONE
     Indication: Axial spondyloarthritis
     Dosage: 10 MG/J
     Route: 048
     Dates: start: 2022
  7. BILASTINE [Concomitant]
     Active Substance: BILASTINE
     Indication: Product used for unknown indication
     Dosage: 20 MG/J
     Route: 048
  8. MELATONIN [Concomitant]
     Active Substance: MELATONIN
     Indication: Insomnia
     Dosage: 2 MG/J
     Route: 048

REACTIONS (1)
  - Insomnia [Not Recovered/Not Resolved]

NARRATIVE: CASE EVENT DATE: 20241101
